FAERS Safety Report 9411306 (Version 5)
Quarter: 2013Q4

REPORT INFORMATION
  Report Type: Spontaneous
  Country: US (occurrence: US)
  Receive Date: 20130722
  Receipt Date: 20131126
  Transmission Date: 20140711
  Serious: No
  Sender: FDA-Public Use
  Company Number: US-BIOGENIDEC-2013BI063119

PATIENT
  Age: 38 Year
  Sex: Female

DRUGS (25)
  1. TYSABRI [Suspect]
     Indication: MULTIPLE SCLEROSIS
     Route: 042
     Dates: start: 20100309, end: 20130702
  2. TOPAMAX [Concomitant]
     Route: 048
  3. DURAGESIC [Concomitant]
  4. MAXALT [Concomitant]
     Indication: HEADACHE
  5. ZOFRAN [Concomitant]
     Indication: NAUSEA
  6. RITALIN LA [Concomitant]
     Route: 048
  7. BACLOFEN [Concomitant]
     Route: 048
  8. WELLBUTRIN SR [Concomitant]
     Route: 048
  9. FLEXERIL [Concomitant]
     Indication: MUSCLE SPASMS
  10. ZANAFLEX [Concomitant]
     Indication: MUSCLE SPASMS
  11. EFFEXOR [Concomitant]
     Route: 048
  12. XANAX [Concomitant]
  13. BENADRYL ALLERGY [Concomitant]
  14. LEVOTHYROXINE [Concomitant]
     Route: 048
  15. OPANA [Concomitant]
     Route: 048
  16. ZYRTEC [Concomitant]
     Route: 048
  17. AMBIEN [Concomitant]
  18. CLARITIN [Concomitant]
  19. CALCIUM [Concomitant]
     Route: 048
  20. MULTIPLE VIT [Concomitant]
     Route: 048
  21. FISH OIL [Concomitant]
  22. VITAMIN B [Concomitant]
     Route: 048
  23. VITAMIN C [Concomitant]
     Route: 048
  24. VITAMIN D [Concomitant]
     Route: 048
  25. VITAMIN E [Concomitant]
     Route: 048

REACTIONS (7)
  - Fall [Recovered/Resolved]
  - Fatigue [Unknown]
  - Treatment failure [Unknown]
  - Upper respiratory tract infection [Unknown]
  - Urinary tract infection [Unknown]
  - Intervertebral disc degeneration [Unknown]
  - Drug specific antibody present [Unknown]
